FAERS Safety Report 17519451 (Version 6)
Quarter: 2020Q2

REPORT INFORMATION
  Report Type: Spontaneous
  Country: FR (occurrence: FR)
  Receive Date: 20200310
  Receipt Date: 20200617
  Transmission Date: 20200713
  Serious: Yes (Other)
  Sender: FDA-Public Use
  Company Number: FR-ABBVIE-20P-056-3310566-00

PATIENT
  Age: 46 Year
  Sex: Female

DRUGS (2)
  1. ENANTONE LP [Suspect]
     Active Substance: LEUPROLIDE ACETATE
     Indication: BREAST CANCER
     Dosage: 3.75 MILLIGRAM
     Route: 051
  2. ENANTONE LP [Suspect]
     Active Substance: LEUPROLIDE ACETATE
     Dosage: 3.75 MILLIGRAM
     Route: 051
     Dates: start: 202001, end: 202001

REACTIONS (8)
  - Skin burning sensation [Not Recovered/Not Resolved]
  - Pruritus [Unknown]
  - Swelling [Recovering/Resolving]
  - Rash [Not Recovered/Not Resolved]
  - Suspected product quality issue [Unknown]
  - Rash erythematous [Not Recovered/Not Resolved]
  - Face oedema [Recovering/Resolving]
  - Swelling face [Recovering/Resolving]

NARRATIVE: CASE EVENT DATE: 202001
